FAERS Safety Report 7080307-2 (Version None)
Quarter: 2010Q4

REPORT INFORMATION
  Report Type: 
  Country: None (occurrence: None)
  Receive Date: 20101103
  Receipt Date: 20101020
  Transmission Date: 20110411
  Serious: Yes (Other)
  Sender: FDA-Public Use
  Company Number: FR-RANBAXY-2010RR-38269

PATIENT
  Age: 61 Year
  Sex: Male

DRUGS (7)
  1. IBUPROFEN [Suspect]
     Indication: ANALGESIC THERAPY
     Dosage: UNK
     Dates: end: 20090607
  2. ADALIMUMAB [Suspect]
     Indication: RHEUMATOID ARTHRITIS
     Dosage: 40 MG, FORTNIGHT
  3. METHOTREXATE SODIUM [Concomitant]
     Dosage: 20 MG, 1/WEEK
  4. PREDNISONE [Concomitant]
     Dosage: 5 MG, UNK
  5. PREDNISONE [Concomitant]
     Dosage: 40 MG, UNK
  6. PREDNISONE [Concomitant]
     Dosage: 10 MG, UNK
  7. IRBESARTAN [Concomitant]
     Indication: HYPERTENSION
     Dosage: 150 MG, UNK

REACTIONS (2)
  - EOSINOPHILIA [None]
  - HEPATITIS ACUTE [None]
